FAERS Safety Report 14233412 (Version 2)
Quarter: 2018Q1

REPORT INFORMATION
  Report Type: Spontaneous
  Country: US (occurrence: US)
  Receive Date: 20171128
  Receipt Date: 20180220
  Transmission Date: 20180508
  Serious: No
  Sender: FDA-Public Use
  Company Number: US-IMPAX LABORATORIES, INC-2017-IPXL-03411

PATIENT
  Age: 71 Year
  Sex: Female
  Weight: 49 kg

DRUGS (1)
  1. RYTARY [Suspect]
     Active Substance: CARBIDOPA\LEVODOPA
     Indication: PARKINSON^S DISEASE
     Dosage: 48.75/195MG CAPSULES, TWO CAPSULE, FIVE TIME DAILY (TITRATED DOSE PRESCRIBED BY PHYSICIAN)
     Route: 048
     Dates: start: 20171026, end: 201711

REACTIONS (5)
  - Panic attack [Recovering/Resolving]
  - Energy increased [Recovered/Resolved]
  - Balance disorder [Unknown]
  - Vision blurred [Unknown]
  - Headache [Unknown]

NARRATIVE: CASE EVENT DATE: 20171120
